FAERS Safety Report 8721388 (Version 2)
Quarter: 2012Q4

REPORT INFORMATION
  Report Type: 
  Country: US (occurrence: US)
  Receive Date: 20120813
  Receipt Date: 20120911
  Transmission Date: 20130627
  Serious: Yes (Hospitalization, Other)
  Sender: FDA-Public Use
  Company Number: US-PFIZER INC-2012192608

PATIENT
  Age: 60 Year
  Sex: Male
  Weight: 142 kg

DRUGS (3)
  1. REVATIO [Suspect]
     Indication: PULMONARY HYPERTENSION
     Dosage: 20 mg, 3x/day
     Route: 048
     Dates: end: 2011
  2. REVATIO [Suspect]
     Dosage: UNK
     Route: 048
     Dates: start: 2012
  3. REVATIO [Suspect]
     Dosage: 20 mg, 3x/day
     Route: 048

REACTIONS (10)
  - Fluid retention [Recovering/Resolving]
  - Oedema peripheral [Recovering/Resolving]
  - Constipation [Recovering/Resolving]
  - Intestinal obstruction [Recovering/Resolving]
  - Pulmonary oedema [Recovering/Resolving]
  - Weight increased [Recovering/Resolving]
  - Functional gastrointestinal disorder [Recovering/Resolving]
  - Dyspepsia [Recovering/Resolving]
  - Drug ineffective [Unknown]
  - Expired drug administered [Unknown]
